FAERS Safety Report 20052674 (Version 1)
Quarter: 2021Q4

REPORT INFORMATION
  Report Type: Report from Study
  Country: US (occurrence: US)
  Receive Date: 20211110
  Receipt Date: 20211110
  Transmission Date: 20220303
  Serious: Yes (Hospitalization, Other)
  Sender: FDA-Public Use
  Company Number: US-ALNYLAM PHARMACEUTICALS, INC.-ALN-2021-002856

PATIENT

DRUGS (3)
  1. ONPATTRO [Suspect]
     Active Substance: PATISIRAN SODIUM
     Indication: Product used for unknown indication
     Route: 065
  2. TYLENOL [Concomitant]
     Active Substance: ACETAMINOPHEN
     Indication: Product used for unknown indication
  3. LYRICA [Concomitant]
     Active Substance: PREGABALIN
     Indication: Product used for unknown indication

REACTIONS (11)
  - Renal failure [Unknown]
  - Toxicity to various agents [Unknown]
  - Haemorrhage [Unknown]
  - Gait inability [Unknown]
  - Fall [Unknown]
  - Hallucination [Unknown]
  - Dehydration [Unknown]
  - Colonoscopy [Unknown]
  - Breast pain [Recovered/Resolved]
  - Keloid scar [Recovered/Resolved]
  - Transplant [Recovered/Resolved]

NARRATIVE: CASE EVENT DATE: 20211101
